FAERS Safety Report 8909351 (Version 2)
Quarter: 2012Q4

REPORT INFORMATION
  Report Type: Spontaneous
  Country: US (occurrence: None)
  Receive Date: 20121107
  Receipt Date: 20121116
  Transmission Date: 20130627
  Serious: Yes (Death, Hospitalization)
  Sender: FDA-Public Use
  Company Number: DKLU1086071

PATIENT
  Age: 17 Month
  Sex: Female

DRUGS (3)
  1. SABRIL [Suspect]
     Indication: INFANTILE SPASMS
     Dates: start: 20110802
  2. SABRIL [Suspect]
     Indication: INFANTILE SPASMS
     Dates: start: 201108
  3. PHENOBARBITAL (PHENOBARBITAL) [Concomitant]

REACTIONS (1)
  - Cardio-respiratory arrest [None]
